FAERS Safety Report 20681034 (Version 1)
Quarter: 2022Q2

REPORT INFORMATION
  Report Type: Spontaneous
  Country: US (occurrence: US)
  Receive Date: 20220406
  Receipt Date: 20220406
  Transmission Date: 20220721
  Serious: No
  Sender: FDA-Public Use
  Company Number: US-PFIZER INC-202100951489

PATIENT
  Age: 72 Year
  Sex: Female
  Weight: 50.35 kg

DRUGS (2)
  1. IBRANCE [Suspect]
     Active Substance: PALBOCICLIB
     Indication: Breast cancer metastatic
     Dosage: 100 MG
  2. IBRANCE [Suspect]
     Active Substance: PALBOCICLIB
     Dosage: 75 MG, 1X/DAY (FOR 21 DAYS AND THEN 7 DAYS OFF)

REACTIONS (5)
  - Product packaging difficult to open [Unknown]
  - Poor quality product administered [Unknown]
  - Product physical issue [Unknown]
  - Immune system disorder [Unknown]
  - Off label use [Unknown]
